FAERS Safety Report 10460902 (Version 1)
Quarter: 2014Q3

REPORT INFORMATION
  Report Type: Spontaneous
  Country: FR (occurrence: None)
  Receive Date: 20140916
  Receipt Date: 20140916
  Transmission Date: 20150326
  Serious: Yes (Death, Other)
  Sender: FDA-Public Use
  Company Number: 2014COV00111

PATIENT
  Age: 48 Year
  Sex: Female

DRUGS (8)
  1. HEPARIN SODIUM. [Suspect]
     Active Substance: HEPARIN SODIUM
     Route: 042
     Dates: start: 20140624
  2. KAYEXALATE [Suspect]
     Active Substance: SODIUM POLYSTYRENE SULFONATE
     Indication: HYPERKALAEMIA
     Route: 048
     Dates: start: 20140620
  3. AUGMENTIN [Suspect]
     Active Substance: AMOXICILLIN\CLAVULANATE POTASSIUM
     Indication: INFECTION
     Dates: start: 20140624
  4. PREDNISONE. [Concomitant]
     Active Substance: PREDNISONE
  5. PRAVASTATIN SODIUM. [Concomitant]
     Active Substance: PRAVASTATIN SODIUM
  6. ESOMEPRAZOLE [Concomitant]
     Active Substance: ESOMEPRAZOLE
  7. DARBEPOETIN ALFA [Concomitant]
     Active Substance: DARBEPOETIN ALFA
  8. CICLOSPORIN [Concomitant]
     Active Substance: CYCLOSPORINE

REACTIONS (10)
  - Gastrointestinal haemorrhage [None]
  - Ascites [None]
  - Septic encephalopathy [None]
  - Shock haemorrhagic [None]
  - Hyperkalaemia [None]
  - Large intestine perforation [None]
  - Pelvic venous thrombosis [None]
  - Vena cava thrombosis [None]
  - Septic shock [None]
  - Oliguria [None]

NARRATIVE: CASE EVENT DATE: 20140620
